FAERS Safety Report 10004379 (Version 2)
Quarter: 2014Q1

REPORT INFORMATION
  Report Type: Spontaneous
  Country: US (occurrence: US)
  Receive Date: 20140312
  Receipt Date: 20140317
  Transmission Date: 20141002
  Serious: No
  Sender: FDA-Public Use
  Company Number: US-PFIZER INC-2014072167

PATIENT
  Age: 46 Year
  Sex: Male

DRUGS (5)
  1. LYRICA [Suspect]
     Indication: NEURALGIA
     Dosage: 150 MG, 2X/DAY
     Route: 048
  2. FLEXERIL [Concomitant]
     Dosage: 10 MG, AS NEEDED
  3. HUMIRA [Concomitant]
     Dosage: 40MG / 0.8 ML, 0.8 ML QO WEEK
  4. NORCO [Concomitant]
     Dosage: 10-325 MG, 3X/DAY
  5. IBUPROFEN [Concomitant]
     Dosage: 200 MG 4 TABS BID / PRN

REACTIONS (3)
  - Malaise [Unknown]
  - Pain [Unknown]
  - Feeling abnormal [Unknown]
